FAERS Safety Report 17576106 (Version 2)
Quarter: 2020Q3

REPORT INFORMATION
  Report Type: Spontaneous
  Country: US (occurrence: US)
  Receive Date: 20200324
  Receipt Date: 20200702
  Transmission Date: 20201102
  Serious: No
  Sender: FDA-Public Use
  Company Number: US-GILEAD-2020-0456381

PATIENT
  Sex: Female

DRUGS (2)
  1. MIDOL [IBUPROFEN] [Concomitant]
  2. SOFOSBUVIR;VELPATASVIR [Suspect]
     Active Substance: SOFOSBUVIR\VELPATASVIR
     Indication: CHRONIC HEPATITIS C
     Dosage: 1 DOSAGE FORM, QD
     Route: 048
     Dates: start: 202002, end: 202005

REACTIONS (7)
  - Headache [Unknown]
  - Hypersomnia [Unknown]
  - Diarrhoea [Unknown]
  - Product dose omission issue [Recovered/Resolved]
  - Oral pain [Unknown]
  - Fatigue [Unknown]
  - Insomnia [Unknown]
